FAERS Safety Report 23196708 (Version 1)
Quarter: 2023Q4

REPORT INFORMATION
  Report Type: Spontaneous
  Country: US (occurrence: US)
  Receive Date: 20231117
  Receipt Date: 20231117
  Transmission Date: 20240109
  Serious: Yes (Other)
  Sender: FDA-Public Use
  Company Number: US-MYLANLABS-2023M1121157

PATIENT
  Age: 15 Year
  Sex: Female

DRUGS (26)
  1. IMATINIB [Suspect]
     Active Substance: IMATINIB
     Indication: Gastrointestinal stromal tumour
     Dosage: 400 MILLIGRAM, QD
     Route: 065
  2. IMATINIB [Suspect]
     Active Substance: IMATINIB
     Dosage: 600 MILLIGRAM, QD
     Route: 065
  3. SUNITINIB [Suspect]
     Active Substance: SUNITINIB
     Indication: Gastrointestinal stromal tumour
     Dosage: 25 MILLIGRAM, CYCLE, 4 WEEKS ON AND 2 WEEKS OFF
     Route: 065
  4. SUNITINIB [Suspect]
     Active Substance: SUNITINIB
     Indication: Metastases to liver
  5. SUNITINIB [Suspect]
     Active Substance: SUNITINIB
     Indication: Paraganglion neoplasm
  6. TEMOZOLOMIDE [Suspect]
     Active Substance: TEMOZOLOMIDE
     Indication: Gastrointestinal stromal tumour
     Dosage: 75 MILLIGRAM/SQ. METER, CYCLE. ADMINISTERED DAILY FOR 7 DAYS IN 21-DAY CYCLES
     Route: 065
  7. TEMOZOLOMIDE [Suspect]
     Active Substance: TEMOZOLOMIDE
     Indication: Metastases to liver
     Dosage: DOSE DECREASED
     Route: 065
  8. TEMOZOLOMIDE [Suspect]
     Active Substance: TEMOZOLOMIDE
     Indication: Paraganglion neoplasm
  9. TEMOZOLOMIDE [Suspect]
     Active Substance: TEMOZOLOMIDE
     Indication: Metastases to bone
  10. DEXAMETHASONE [Suspect]
     Active Substance: DEXAMETHASONE
     Indication: Nausea
     Dosage: UNK
     Route: 065
  11. LUMINESPIB [Suspect]
     Active Substance: LUMINESPIB
     Indication: Gastrointestinal stromal tumour
     Dosage: AUY922, UNK UNK, CYCLE
     Route: 065
  12. LUMINESPIB [Suspect]
     Active Substance: LUMINESPIB
     Indication: Metastases to liver
  13. LUMINESPIB [Suspect]
     Active Substance: LUMINESPIB
     Indication: Paraganglion neoplasm
  14. NILOTINIB [Concomitant]
     Active Substance: NILOTINIB
     Indication: Gastrointestinal stromal tumour
     Dosage: 200 MILLIGRAM, BID
     Route: 065
  15. NILOTINIB [Concomitant]
     Active Substance: NILOTINIB
     Indication: Metastases to liver
  16. NILOTINIB [Concomitant]
     Active Substance: NILOTINIB
     Indication: Paraganglion neoplasm
  17. VANDETANIB [Concomitant]
     Active Substance: VANDETANIB
     Indication: Gastrointestinal stromal tumour
     Dosage: 200 MILLIGRAM, QD
     Route: 065
  18. VANDETANIB [Concomitant]
     Active Substance: VANDETANIB
     Indication: Metastases to liver
  19. VANDETANIB [Concomitant]
     Active Substance: VANDETANIB
     Indication: Paraganglion neoplasm
  20. REGORAFENIB [Concomitant]
     Active Substance: REGORAFENIB
     Indication: Gastrointestinal stromal tumour
     Dosage: 160 MILLIGRAM, CYCLE, 21 DAYS ON, 7 DAYS OFF
     Route: 065
  21. REGORAFENIB [Concomitant]
     Active Substance: REGORAFENIB
     Indication: Metastases to liver
  22. REGORAFENIB [Concomitant]
     Active Substance: REGORAFENIB
     Indication: Paraganglion neoplasm
  23. OLAPARIB [Concomitant]
     Active Substance: OLAPARIB
     Indication: Gastrointestinal stromal tumour
     Dosage: 200 MILLIGRAM, CYCLE, ADMINISTERED 2 TIMES DAILY FOR 7 DAYS IN 21-DAY CYCLES
     Route: 065
  24. OLAPARIB [Concomitant]
     Active Substance: OLAPARIB
     Indication: Metastases to liver
  25. OLAPARIB [Concomitant]
     Active Substance: OLAPARIB
     Indication: Paraganglion neoplasm
  26. OLAPARIB [Concomitant]
     Active Substance: OLAPARIB
     Indication: Metastases to bone

REACTIONS (4)
  - Drug ineffective [Unknown]
  - Nausea [Unknown]
  - Substance-induced psychotic disorder [Unknown]
  - Off label use [Unknown]
